FAERS Safety Report 21089831 (Version 1)
Quarter: 2022Q3

REPORT INFORMATION
  Report Type: Spontaneous
  Country: US (occurrence: US)
  Receive Date: 20220715
  Receipt Date: 20220715
  Transmission Date: 20221026
  Serious: No
  Sender: FDA-Public Use
  Company Number: US-BAUSCH-BL-2022-017984

PATIENT
  Sex: Female

DRUGS (1)
  1. DIASTAT ACUDIAL [Suspect]
     Active Substance: DIAZEPAM
     Indication: Seizure
     Dosage: THE PATIENT USING THE PRODUCT FOR OVER 5 YEARS
     Route: 054

REACTIONS (2)
  - Product physical issue [Unknown]
  - Device colour issue [Unknown]

NARRATIVE: CASE EVENT DATE: 20210101
